FAERS Safety Report 4887859-9 (Version None)
Quarter: 2006Q1

REPORT INFORMATION
  Report Type: 
  Country: None (occurrence: None)
  Receive Date: 20060123
  Receipt Date: 20050317
  Transmission Date: 20060701
  Serious: Yes (Hospitalization, Other)
  Sender: FDA-Public Use
  Company Number: US-MERCK-0503USA03466

PATIENT
  Age: 52 Year
  Sex: Male
  Weight: 66 kg

DRUGS (12)
  1. VIOXX [Suspect]
     Indication: ARTHRITIS
     Route: 048
     Dates: start: 20000101, end: 20030101
  2. VIOXX [Suspect]
     Route: 048
     Dates: start: 20000101, end: 20030101
  3. VIOXX [Suspect]
     Route: 048
     Dates: start: 20000101, end: 20030101
  4. VIOXX [Suspect]
     Route: 048
     Dates: start: 20000101, end: 20030101
  5. VIOXX [Suspect]
     Indication: BACK PAIN
     Route: 048
     Dates: start: 20000101, end: 20030101
  6. VIOXX [Suspect]
     Route: 048
     Dates: start: 20000101, end: 20030101
  7. VIOXX [Suspect]
     Route: 048
     Dates: start: 20000101, end: 20030101
  8. VIOXX [Suspect]
     Route: 048
     Dates: start: 20000101, end: 20030101
  9. ROBAXIN [Concomitant]
     Route: 065
  10. DALMANE [Concomitant]
     Route: 065
  11. VASOTEC [Concomitant]
     Route: 065
  12. ISONIAZID [Concomitant]
     Route: 065

REACTIONS (32)
  - ABDOMINAL PAIN [None]
  - ANAEMIA [None]
  - BACTERAEMIA [None]
  - BONE DISORDER [None]
  - BRONCHITIS [None]
  - CARDIAC FAILURE CONGESTIVE [None]
  - CEREBROVASCULAR ACCIDENT [None]
  - CYSTITIS HAEMORRHAGIC [None]
  - DYSPNOEA [None]
  - GASTRIC ULCER [None]
  - GRAFT DYSFUNCTION [None]
  - HYPERKALAEMIA [None]
  - HYPERPARATHYROIDISM [None]
  - ILEUS [None]
  - KIDNEY ENLARGEMENT [None]
  - LEUKOCYTOSIS [None]
  - LUMBAR VERTEBRAL FRACTURE [None]
  - MYOCARDIAL INFARCTION [None]
  - OEDEMA PERIPHERAL [None]
  - PALPITATIONS [None]
  - PELVIC FRACTURE [None]
  - PERITONITIS [None]
  - PNEUMONIA [None]
  - PULMONARY OEDEMA [None]
  - PULMONARY VASCULAR DISORDER [None]
  - RENAL OSTEODYSTROPHY [None]
  - RETROPERITONEAL HAEMORRHAGE [None]
  - SEPSIS [None]
  - SHUNT THROMBOSIS [None]
  - SYNCOPE [None]
  - SYNOVIAL CYST [None]
  - URINARY TRACT INFECTION [None]
